FAERS Safety Report 24173503 (Version 1)
Quarter: 2024Q3

REPORT INFORMATION
  Report Type: Spontaneous
  Country: US (occurrence: US)
  Receive Date: 20240805
  Receipt Date: 20240805
  Transmission Date: 20241017
  Serious: No
  Sender: APOTEX
  Company Number: US-APOTEX-2023AP016559

PATIENT
  Age: 68 Year
  Sex: Female

DRUGS (2)
  1. TRAMADOL [Suspect]
     Active Substance: TRAMADOL\TRAMADOL HYDROCHLORIDE
     Indication: Pain
     Dosage: 50 MILLIGRAM, Q.6H (AS NEEDED)
     Route: 065
  2. TRAMADOL [Suspect]
     Active Substance: TRAMADOL\TRAMADOL HYDROCHLORIDE
     Indication: Fibromyalgia

REACTIONS (5)
  - Secretion discharge [Recovering/Resolving]
  - Chest discomfort [Unknown]
  - Neck pain [Recovering/Resolving]
  - Insomnia [Recovering/Resolving]
  - Withdrawal syndrome [Unknown]
